FAERS Safety Report 9714471 (Version 1)
Quarter: 2013Q4

REPORT INFORMATION
  Report Type: Spontaneous
  Country: US (occurrence: US)
  Receive Date: 20131126
  Receipt Date: 20131126
  Transmission Date: 20140711
  Serious: Yes (Other)
  Sender: FDA-Public Use
  Company Number: US-WATSON-2013-21523

PATIENT
  Sex: Male

DRUGS (1)
  1. HYDROCODONE BITARTRATE/ACETAMINOPHEN 5/500 (WATSON LABORATORIES) [Suspect]
     Indication: PRODUCT USED FOR UNKNOWN INDICATION
     Dosage: 1 PILL EVERY 12 HOURS
     Route: 048
     Dates: start: 20131021

REACTIONS (3)
  - Pain [Unknown]
  - Spinal pain [Unknown]
  - Headache [Unknown]
